FAERS Safety Report 8914339 (Version 3)
Quarter: 2013Q1

REPORT INFORMATION
  Report Type: Report from Study
  Country: US (occurrence: US)
  Receive Date: 20121116
  Receipt Date: 20130124
  Transmission Date: 20140127
  Serious: Yes (Other)
  Sender: FDA-Public Use
  Company Number: US-ABBOTT-12P-163-1006412-00

PATIENT
  Age: 78 Year
  Sex: Female
  Weight: 77.18 kg

DRUGS (4)
  1. HUMIRA [Suspect]
     Indication: PSORIASIS
     Route: 058
     Dates: start: 20070906
  2. DOVONEX [Concomitant]
     Indication: PSORIASIS
     Dates: start: 20060308
  3. ULTRAVATE [Concomitant]
     Indication: PSORIASIS
     Dates: start: 20080612
  4. OLUX [Concomitant]
     Indication: PSORIASIS
     Dosage: FOAM
     Dates: start: 20060308

REACTIONS (1)
  - Squamous cell carcinoma of skin [Recovered/Resolved]
